FAERS Safety Report 12487840 (Version 1)
Quarter: 2016Q2

REPORT INFORMATION
  Report Type: Spontaneous
  Country: US (occurrence: US)
  Receive Date: 20160622
  Receipt Date: 20160622
  Transmission Date: 20160815
  Serious: No
  Sender: FDA-Public Use
  Company Number: PHEH2016US015450

PATIENT
  Age: 62 Year
  Sex: Female

DRUGS (2)
  1. VOTRIENT [Suspect]
     Active Substance: PAZOPANIB HYDROCHLORIDE
     Indication: ENDOMETRIAL NEOPLASM
     Dosage: 1 DF, QD
     Route: 048
     Dates: start: 20160428
  2. VOTRIENT [Suspect]
     Active Substance: PAZOPANIB HYDROCHLORIDE
     Indication: BREAST CANCER FEMALE

REACTIONS (3)
  - Nausea [Unknown]
  - Decreased appetite [Unknown]
  - Product use issue [Unknown]

NARRATIVE: CASE EVENT DATE: 20160527
